FAERS Safety Report 5873128-7 (Version None)
Quarter: 2008Q3

REPORT INFORMATION
  Report Type: 
  Country: None (occurrence: None)
  Receive Date: 20080908
  Receipt Date: 20080904
  Transmission Date: 20090109
  Serious: Yes (Other)
  Sender: FDA-Public Use
  Company Number: FR-BRISTOL-MYERS SQUIBB COMPANY-14148993

PATIENT
  Age: 33 Year
  Sex: Male
  Weight: 60 kg

DRUGS (6)
  1. ABILIFY [Suspect]
     Indication: SCHIZOPHRENIA, PARANOID TYPE
     Dosage: INITIATED:15SEP07,20MG/D,INCREASED TO 30MG/D,REDUCED TO 15MG ON 11APR08.
     Dates: start: 20070915
  2. IMOVANE [Concomitant]
     Dates: start: 20070801
  3. LEPTICUR [Concomitant]
     Dates: start: 20070411
  4. LOXAPINE HCL [Concomitant]
     Dates: start: 20071116
  5. RIVOTRIL [Concomitant]
     Dates: start: 20071116
  6. ZYPREXA [Concomitant]
     Dates: start: 20080411

REACTIONS (2)
  - ANOREXIA [None]
  - WEIGHT DECREASED [None]
